FAERS Safety Report 6399261-1 (Version None)
Quarter: 2009Q4

REPORT INFORMATION
  Report Type: 
  Country: None (occurrence: None)
  Receive Date: 20091014
  Receipt Date: 20070831
  Transmission Date: 20100525
  Serious: Yes (Other)
  Sender: FDA-Public Use
  Company Number: US-ASTRAZENECA-2006UW02285

PATIENT
  Age: 17786 Day
  Sex: Male
  Weight: 85 kg

DRUGS (16)
  1. SEROQUEL [Suspect]
     Indication: BIPOLAR DISORDER
     Route: 048
     Dates: start: 20030201, end: 20050731
  2. SEROQUEL [Suspect]
     Indication: BIPOLAR I DISORDER
     Route: 048
     Dates: start: 20030201, end: 20050731
  3. SEROQUEL [Suspect]
     Dosage: 200 - 400 MG DAILY
     Route: 048
     Dates: start: 20030620
  4. SEROQUEL [Suspect]
     Dosage: 200 - 400 MG DAILY
     Route: 048
     Dates: start: 20030620
  5. PEGINTERFERON ALFA-2A [Concomitant]
     Dosage: STRENGTH: 180 MCG/ML DOSE: 180 MCG/ML ONCE A WEEK
     Route: 059
     Dates: start: 20030708
  6. PAROXETINE HCL [Concomitant]
     Dates: start: 20040618
  7. TRAZODONE HCL [Concomitant]
     Indication: SLEEP DISORDER
     Route: 048
     Dates: start: 20040615
  8. RISPERIDONE [Concomitant]
     Dosage: 4-6 MG DAILY
     Route: 048
     Dates: start: 20040615
  9. DURAGESIC-100 [Concomitant]
     Dates: start: 20050111
  10. GABAPENTIN [Concomitant]
     Dates: start: 20050111
  11. NAPROXEN [Concomitant]
     Dates: start: 20050111
  12. PRAMIPEXOLE [Concomitant]
     Dates: start: 20050111
  13. FLUOXETINE [Concomitant]
     Dates: start: 20050111
  14. DIAZEPAM [Concomitant]
     Dates: start: 20050111
  15. OMEPRAZOLE [Concomitant]
     Dates: start: 20050111
  16. CLONAZEPAM [Concomitant]
     Indication: ANXIETY
     Dosage: FOUR TIMES A DAY AS NEEDED
     Route: 048
     Dates: start: 20040609

REACTIONS (8)
  - ABNORMAL SLEEP-RELATED EVENT [None]
  - ANGER [None]
  - HYPERGLYCAEMIA [None]
  - MANIA [None]
  - NEUROPATHY PERIPHERAL [None]
  - RESTLESS LEGS SYNDROME [None]
  - TYPE 1 DIABETES MELLITUS [None]
  - TYPE 2 DIABETES MELLITUS [None]
